FAERS Safety Report 9579358 (Version 2)
Quarter: 2013Q4

REPORT INFORMATION
  Report Type: Spontaneous
  Country: US (occurrence: US)
  Receive Date: 20131001
  Receipt Date: 20131001
  Transmission Date: 20140711
  Serious: No
  Sender: FDA-Public Use
  Company Number: US-AMGEN-USASP2013016746

PATIENT
  Age: 33 Year
  Sex: Female
  Weight: 67.12 kg

DRUGS (4)
  1. ENBREL [Suspect]
     Indication: PRODUCT USED FOR UNKNOWN INDICATION
     Dosage: 50 MG, 2 TIMES/WK, (72-96 HOURS APART) FOR 3 MONTHS AND THEN 50 MG WEEKLY THEREAFTER
     Route: 058
  2. ENBREL [Suspect]
  3. ENBREL [Suspect]
  4. ADVIL                              /00044201/ [Concomitant]
     Dosage: 200 MG, UNK

REACTIONS (6)
  - Injection site pain [Not Recovered/Not Resolved]
  - Injection site erythema [Unknown]
  - Injection site pruritus [Unknown]
  - Injection site warmth [Unknown]
  - Injection site reaction [Unknown]
  - Injection site swelling [Unknown]
